FAERS Safety Report 10891605 (Version 1)
Quarter: 2015Q1

REPORT INFORMATION
  Report Type: Spontaneous
  Country: IN (occurrence: IN)
  Receive Date: 20150306
  Receipt Date: 20150306
  Transmission Date: 20150721
  Serious: Yes (Other)
  Sender: FDA-Public Use
  Company Number: IN-GLAXOSMITHKLINE-IN2015GSK029621

PATIENT
  Age: 14 Year
  Sex: Male

DRUGS (3)
  1. EFAVIRENZ [Suspect]
     Active Substance: EFAVIRENZ
     Indication: HIV INFECTION
  2. LAMIVUDINE. [Suspect]
     Active Substance: LAMIVUDINE
     Indication: HIV INFECTION
  3. ZIDOVUDINE. [Suspect]
     Active Substance: ZIDOVUDINE
     Indication: HIV INFECTION

REACTIONS (7)
  - Abnormal behaviour [Unknown]
  - Disturbance in attention [Unknown]
  - Dyskinesia [Unknown]
  - Subacute sclerosing panencephalitis [Unknown]
  - Myoclonus [Unknown]
  - Clumsiness [Unknown]
  - Fall [Unknown]
